FAERS Safety Report 11121042 (Version 1)
Quarter: 2015Q2

REPORT INFORMATION
  Report Type: Spontaneous
  Country: US (occurrence: None)
  Receive Date: 20150515
  Receipt Date: 20150515
  Transmission Date: 20150821
  Serious: Yes (Hospitalization, Other)
  Sender: FDA-Public Use
  Company Number: FK201502206

PATIENT
  Age: 66 Year
  Sex: Female

DRUGS (2)
  1. FINGOLIMOD (FINGOLIMOD) [Suspect]
     Active Substance: FINGOLIMOD
     Indication: MULTIPLE SCLEROSIS
     Dosage: 1 IN 1 D, UNKNOWN
  2. METHYLPREDNISOLONE. [Suspect]
     Active Substance: METHYLPREDNISOLONE
     Indication: MULTIPLE SCLEROSIS RELAPSE
     Route: 042

REACTIONS (5)
  - Transient ischaemic attack [None]
  - Herpes zoster meningoencephalitis [None]
  - Ischaemic cerebral infarction [None]
  - Generalised tonic-clonic seizure [None]
  - Uveitis [None]
